FAERS Safety Report 6278413-5 (Version None)
Quarter: 2009Q3

REPORT INFORMATION
  Report Type: 
  Country: None (occurrence: None)
  Receive Date: 20090721
  Receipt Date: 20090716
  Transmission Date: 20100115
  Serious: Yes (Death)
  Sender: FDA-Public Use
  Company Number: 2009SP015731

PATIENT
  Age: 91 Year
  Sex: Female

DRUGS (1)
  1. TEMODAL [Suspect]
     Indication: MALIGNANT MELANOMA
     Dates: start: 20080701

REACTIONS (3)
  - OVERDOSE [None]
  - PRODUCT QUALITY ISSUE [None]
  - SUICIDAL IDEATION [None]
